FAERS Safety Report 11391691 (Version 9)
Quarter: 2017Q1

REPORT INFORMATION
  Report Type: Spontaneous
  Country: US (occurrence: US)
  Receive Date: 20150818
  Receipt Date: 20170315
  Transmission Date: 20170428
  Serious: Yes (Death, Hospitalization)
  Sender: FDA-Public Use
  Company Number: US-ELI_LILLY_AND_COMPANY-US201508004103

PATIENT
  Age: 55 Year
  Sex: Male

DRUGS (15)
  1. AMLODIPINE BESILATE W/ATORVASTATIN CALCIUM [Concomitant]
     Indication: HYPERTENSION
     Dosage: UNK, QD
  2. COLACE [Concomitant]
     Active Substance: DOCUSATE SODIUM
     Indication: CONSTIPATION
     Dosage: 100 MG, QD
     Route: 048
  3. NAPROSYN [Concomitant]
     Active Substance: NAPROXEN
     Dosage: UNK
  4. CIALIS [Suspect]
     Active Substance: TADALAFIL
     Indication: ERECTILE DYSFUNCTION
     Dosage: 20 MG, PRN
     Route: 048
     Dates: start: 200912, end: 201302
  5. PRINIVIL [Concomitant]
     Active Substance: LISINOPRIL
     Dosage: 40 MG, QD
     Route: 048
  6. VICODIN [Concomitant]
     Active Substance: ACETAMINOPHEN\HYDROCODONE BITARTRATE
     Dosage: UNK, UNKNOWN
  7. NORCO [Concomitant]
     Active Substance: ACETAMINOPHEN\HYDROCODONE BITARTRATE
     Dosage: UNK
  8. BYSTOLIC [Concomitant]
     Active Substance: NEBIVOLOL HYDROCHLORIDE
     Indication: HYPERTENSION
     Dosage: 5 MG, QD
     Route: 048
     Dates: end: 201308
  9. EXFORGE [Concomitant]
     Active Substance: AMLODIPINE BESYLATE\VALSARTAN
     Dosage: 10 MG, QD
     Route: 048
  10. NORVASC [Concomitant]
     Active Substance: AMLODIPINE BESYLATE
     Indication: HYPERTENSION
     Dosage: 10 MG, QD
     Route: 048
     Dates: end: 201308
  11. CIALIS [Suspect]
     Active Substance: TADALAFIL
     Dosage: UNK, PRN
     Route: 048
     Dates: start: 20130413, end: 20130509
  12. BYSTOLIC [Concomitant]
     Active Substance: NEBIVOLOL HYDROCHLORIDE
     Dosage: 10 MG, QD
     Route: 048
  13. EXFORGE [Concomitant]
     Active Substance: AMLODIPINE BESYLATE\VALSARTAN
     Dosage: 160 MG, QD
     Route: 048
  14. VIBRAMYCIN [Concomitant]
     Active Substance: DOXYCYCLINE
     Dosage: 100 MG, BID
     Route: 048
  15. LISINOPRIL. [Concomitant]
     Active Substance: LISINOPRIL
     Dosage: UNK

REACTIONS (17)
  - Metastatic malignant melanoma [Not Recovered/Not Resolved]
  - Dehydration [Unknown]
  - Urinary tract infection [Unknown]
  - Vision blurred [Unknown]
  - Nausea [Unknown]
  - Abdominal pain [Unknown]
  - Balance disorder [Unknown]
  - Pain in extremity [Unknown]
  - Decreased appetite [Unknown]
  - Malignant neoplasm progression [Fatal]
  - Cyst [Unknown]
  - Constipation [Unknown]
  - Lymphoedema [Unknown]
  - Fatigue [Unknown]
  - Dizziness [Unknown]
  - Weight decreased [Unknown]
  - Vomiting [Unknown]

NARRATIVE: CASE EVENT DATE: 201304
